FAERS Safety Report 17715831 (Version 1)
Quarter: 2020Q2

REPORT INFORMATION
  Report Type: Spontaneous
  Country: FR (occurrence: FR)
  Receive Date: 20200427
  Receipt Date: 20200427
  Transmission Date: 20200714
  Serious: Yes (Hospitalization)
  Sender: FDA-Public Use
  Company Number: FR-SUN PHARMACEUTICAL INDUSTRIES LTD-2020RR-245252

PATIENT
  Age: 85 Year
  Sex: Female
  Weight: 67 kg

DRUGS (8)
  1. VALACICLOVIR MYLAN 500 MG, COMPRIME PELLICULE [Suspect]
     Active Substance: VALACYCLOVIR HYDROCHLORIDE
     Indication: INFECTION PROPHYLAXIS
     Dosage: INCONNUE
     Route: 048
     Dates: start: 20200217, end: 20200306
  2. PAMIDRONATE DE SODIUM HOSPIRA [Suspect]
     Active Substance: PAMIDRONATE DISODIUM
     Indication: PRODUCT USED FOR UNKNOWN INDICATION
     Dosage: 90 MILLIGRAM, MONTHLY
     Route: 042
  3. REVLIMID [Suspect]
     Active Substance: LENALIDOMIDE
     Indication: PLASMA CELL MYELOMA
     Dosage: 25 MILLIGRAM, DAILY
     Route: 048
     Dates: start: 20200217, end: 20200306
  4. ACIDE FOLIQUE MYLAN 5 MG, COMPRIME [Suspect]
     Active Substance: FOLIC ACID
     Indication: PROPHYLAXIS
     Dosage: INCONNUE
     Route: 048
     Dates: start: 20200217, end: 20200306
  5. OMEPRAZOLE. [Suspect]
     Active Substance: OMEPRAZOLE
     Indication: PRODUCT USED FOR UNKNOWN INDICATION
     Dosage: INCONNUE
     Route: 048
     Dates: start: 20200217, end: 20200306
  6. BACTRIM [Suspect]
     Active Substance: SULFAMETHOXAZOLE\TRIMETHOPRIM
     Indication: INFECTION PROPHYLAXIS
     Dosage: 3 DOSAGE FORM, WEEKLY
     Route: 048
     Dates: start: 20200217, end: 20200306
  7. AMOXICILLINE ZENTIVA 500 MG, GELULE [Suspect]
     Active Substance: AMOXICILLIN
     Indication: PRODUCT USED FOR UNKNOWN INDICATION
     Dosage: 1000 MILLIGRAM, DAILY
     Route: 048
     Dates: start: 20200217, end: 20200306
  8. ASPEGIC (ACETYLSALICYLATE LYSINE) [Suspect]
     Active Substance: ASPIRIN DL-LYSINE
     Indication: PRODUCT USED FOR UNKNOWN INDICATION
     Dosage: 100 MILLIGRAM, DAILY
     Route: 048
     Dates: start: 20200217, end: 20200306

REACTIONS (1)
  - Stevens-Johnson syndrome [Recovering/Resolving]

NARRATIVE: CASE EVENT DATE: 20200306
